FAERS Safety Report 15587314 (Version 1)
Quarter: 2018Q4

REPORT INFORMATION
  Report Type: Spontaneous
  Country: JP (occurrence: JP)
  Receive Date: 20181105
  Receipt Date: 20181105
  Transmission Date: 20190205
  Serious: Yes (Other)
  Sender: FDA-Public Use
  Company Number: JP-PFIZER INC-2018434168

PATIENT
  Age: 10 Decade

DRUGS (2)
  1. ALDACTONE A 25MG [Suspect]
     Active Substance: SPIRONOLACTONE
     Indication: OEDEMA
  2. LASIX [Suspect]
     Active Substance: FUROSEMIDE
     Indication: OEDEMA

REACTIONS (1)
  - Blood pressure decreased [Unknown]
